FAERS Safety Report 7706465-1 (Version None)
Quarter: 2011Q3

REPORT INFORMATION
  Report Type: 
  Country: None (occurrence: None)
  Receive Date: 20110824
  Receipt Date: 20110815
  Transmission Date: 20111222
  Serious: Yes (Other)
  Sender: FDA-Public Use
  Company Number: US-JNJFOC-20110808877

PATIENT
  Sex: Male
  Weight: 39.5 kg

DRUGS (13)
  1. FERROUS SULFATE TAB [Concomitant]
  2. REMICADE [Suspect]
     Route: 042
     Dates: start: 20091020
  3. PERIACTIN [Concomitant]
  4. REMICADE [Suspect]
     Route: 042
     Dates: start: 20110514
  5. REMICADE [Suspect]
     Route: 042
     Dates: start: 20091117
  6. MESALAMINE [Concomitant]
     Route: 048
  7. REMICADE [Suspect]
     Route: 042
     Dates: start: 20110624
  8. REMICADE [Suspect]
     Route: 042
     Dates: start: 20050728, end: 20060609
  9. ATIVAN [Concomitant]
     Indication: PREMEDICATION
     Route: 042
  10. CENTRUM MULTIVITAMINS [Concomitant]
  11. REMICADE [Suspect]
     Indication: INFLAMMATORY BOWEL DISEASE
     Route: 042
     Dates: start: 20091006
  12. PROBIOTICS [Concomitant]
  13. ANTIBIOTICS FOR IBD [Concomitant]
     Indication: INFLAMMATORY BOWEL DISEASE

REACTIONS (1)
  - INFUSION RELATED REACTION [None]
